FAERS Safety Report 6112164-2 (Version None)
Quarter: 2009Q1

REPORT INFORMATION
  Report Type: 
  Country: None (occurrence: None)
  Receive Date: 20090310
  Receipt Date: 20090227
  Transmission Date: 20090719
  Serious: Yes (Other)
  Sender: FDA-Public Use
  Company Number: CHPA2009US05814

PATIENT
  Age: 67 Year
  Sex: Female

DRUGS (2)
  1. BENEFIBER W/WHEAT DEXTRIN               (WHEAT DEXTRIN) POWDER [Suspect]
     Indication: BOWEL MOVEMENT IRREGULARITY
     Dosage: 12 TSP, ONCE AT A TIME, ORAL
     Route: 047
     Dates: start: 20090201
  2. MILK OF MAGNESIA TAB [Concomitant]

REACTIONS (7)
  - BLOOD CHLORIDE DECREASED [None]
  - BLOOD ELECTROLYTES DECREASED [None]
  - BLOOD GLUCOSE INCREASED [None]
  - BLOOD SODIUM DECREASED [None]
  - DIARRHOEA HAEMORRHAGIC [None]
  - FREQUENT BOWEL MOVEMENTS [None]
  - OVERDOSE [None]
